FAERS Safety Report 5502348-6 (Version None)
Quarter: 2007Q4

REPORT INFORMATION
  Report Type: 
  Country: None (occurrence: None)
  Receive Date: 20071030
  Receipt Date: 20071018
  Transmission Date: 20080405
  Serious: Yes (Other)
  Sender: FDA-Public Use
  Company Number: US-SHR-US-2007-034229

PATIENT
  Sex: Male

DRUGS (1)
  1. LEUKINE [Suspect]
     Dates: start: 20070701, end: 20071002

REACTIONS (1)
  - BLINDNESS UNILATERAL [None]
